FAERS Safety Report 21447128 (Version 1)
Quarter: 2022Q4

REPORT INFORMATION
  Report Type: Spontaneous
  Country: CN (occurrence: CN)
  Receive Date: 20221012
  Receipt Date: 20221012
  Transmission Date: 20230113
  Serious: Yes (Other)
  Sender: FDA-Public Use
  Company Number: CN-PFIZER INC-202201070643

PATIENT
  Age: 41 Year
  Sex: Female

DRUGS (2)
  1. VIAGRA [Suspect]
     Active Substance: SILDENAFIL CITRATE
     Indication: Pulmonary arterial hypertension
     Dosage: UNK (ONE TABLET WAS SPLIT FOR 2 DAYS)
     Route: 048
  2. VIAGRA [Suspect]
     Active Substance: SILDENAFIL CITRATE
     Dosage: 0.250 MILLIGRAM, TID (ONE TABLET WAS SPLIT FOR 2 DAYS)
     Route: 048
     Dates: start: 20220810

REACTIONS (6)
  - Angina pectoris [Recovered/Resolved]
  - Discomfort [Recovered/Resolved]
  - Cardiac disorder [Recovered/Resolved]
  - Product use in unapproved indication [Unknown]
  - Product use issue [Unknown]
  - Off label use [Unknown]
